FAERS Safety Report 22008791 (Version 1)
Quarter: 2023Q1

REPORT INFORMATION
  Report Type: Spontaneous
  Country: CN (occurrence: CN)
  Receive Date: 20230219
  Receipt Date: 20230219
  Transmission Date: 20230418
  Serious: Yes (Hospitalization, Other)
  Sender: FDA-Public Use
  Company Number: CN-009507513-2302CHN005298

PATIENT
  Age: 70 Year
  Sex: Female

DRUGS (9)
  1. SITAGLIPTIN PHOSPHATE [Interacting]
     Active Substance: SITAGLIPTIN PHOSPHATE
     Indication: Type 2 diabetes mellitus
     Dosage: 100 MG ONCE A DAY
     Route: 048
     Dates: start: 20210316
  2. OSIMERTINIB [Interacting]
     Active Substance: OSIMERTINIB
     Indication: Lung adenocarcinoma stage III
     Dosage: 80 MG ONCE DAILY
     Route: 048
     Dates: start: 20210409
  3. ACARBOSE;METFORMIN [Concomitant]
     Indication: Type 2 diabetes mellitus
     Dosage: 0.1 G THREE TIMES A DAY REGULARLY
     Route: 048
     Dates: start: 20210316
  4. AMLODIPINE BESYLATE [Concomitant]
     Active Substance: AMLODIPINE BESYLATE
     Indication: Hypertension
     Dosage: 2.5 MG ONCE A DAY REGULARLY
     Route: 048
  5. ASPIRIN [Concomitant]
     Active Substance: ASPIRIN
     Dosage: 100 MG Q.D. IRREGULARLY TAKING
     Route: 048
  6. ATORVASTATIN [Concomitant]
     Active Substance: ATORVASTATIN
     Dosage: 20 MG Q.N. IRREGULARLY TAKING
  7. GLIMEPIRIDE [Concomitant]
     Active Substance: GLIMEPIRIDE
     Indication: Type 2 diabetes mellitus
     Dosage: 2 MG ONCE A DAY
     Route: 048
     Dates: start: 20210316, end: 20210329
  8. METFORMIN [Concomitant]
     Active Substance: METFORMIN HYDROCHLORIDE
     Indication: Type 2 diabetes mellitus
     Dosage: 0.25 G THREE TIMES A DAY
     Route: 048
     Dates: start: 20210316
  9. METFORMIN [Concomitant]
     Active Substance: METFORMIN HYDROCHLORIDE
     Dosage: 0.5 GRAM, BID
     Route: 048
     Dates: start: 202106

REACTIONS (2)
  - Thrombocytopenia [Recovered/Resolved]
  - Drug interaction [Unknown]

NARRATIVE: CASE EVENT DATE: 20210409
